FAERS Safety Report 6612713-1 (Version None)
Quarter: 2010Q1

REPORT INFORMATION
  Report Type: 
  Country: None (occurrence: None)
  Receive Date: 20100303
  Receipt Date: 20100208
  Transmission Date: 20100710
  Serious: No
  Sender: FDA-Public Use
  Company Number: US-BAYER-201014508NA

PATIENT
  Age: 31 Year
  Sex: Female
  Weight: 75 kg

DRUGS (1)
  1. EOVIST [Suspect]
     Indication: NUCLEAR MAGNETIC RESONANCE IMAGING ABDOMINAL
     Dosage: TOTAL DAILY DOSE: 8 ML  UNIT DOSE: 10 ML
     Dates: start: 20100203, end: 20100203

REACTIONS (2)
  - NAUSEA [None]
  - VOMITING [None]
